FAERS Safety Report 6597801-0 (Version None)
Quarter: 2010Q1

REPORT INFORMATION
  Report Type: 
  Country: None (occurrence: None)
  Receive Date: 20100216
  Receipt Date: 20100201
  Transmission Date: 20100710
  Serious: Yes (Hospitalization)
  Sender: FDA-Public Use
  Company Number: SPI201000006

PATIENT
  Sex: Male
  Weight: 97.1 kg

DRUGS (4)
  1. AMITIZA [Suspect]
     Indication: CONSTIPATION
     Dosage: 24 MCG, BID, ORAL
     Route: 048
     Dates: start: 20091217, end: 20091221
  2. SSRI ONGOING [Concomitant]
  3. PHOSPHOROUS BINDERS [Concomitant]
  4. VITAMINS [Concomitant]

REACTIONS (1)
  - MYOCLONUS [None]
